FAERS Safety Report 4852604-X (Version None)
Quarter: 2005Q4

REPORT INFORMATION
  Report Type: 
  Country: None (occurrence: None)
  Receive Date: 20051125
  Receipt Date: 20050622
  Transmission Date: 20060501
  Serious: Yes (Other)
  Sender: FDA-Public Use
  Company Number: 2005059650

PATIENT
  Age: 56 Year
  Sex: Female
  Weight: 88.4514 kg

DRUGS (11)
  1. TIKOSYN [Suspect]
     Indication: ATRIAL FIBRILLATION
     Dosage: 500 MCG  (250 MCG, TWICE DAILY) ORAL
     Route: 048
  2. ZYRTEC [Suspect]
     Indication: HYPERSENSITIVITY
     Dosage: 10 MG (10 MG, DAILY) , ORAL
     Route: 048
     Dates: start: 20050329, end: 20050401
  3. AMOXICILLIN [Suspect]
     Indication: SINUSITIS
     Dosage: ORAL
     Route: 048
     Dates: start: 20050101
  4. PREDNISONE [Concomitant]
  5. NEORAL [Concomitant]
  6. K-DUR 10 [Concomitant]
  7. ATENOLOL [Concomitant]
  8. ZESTRIL [Concomitant]
  9. COUMADIN [Concomitant]
  10. VITAMINS (VITAMINS) [Concomitant]
  11. DIURETICS (DIURETICS) [Concomitant]

REACTIONS (4)
  - HYPERSENSITIVITY [None]
  - OEDEMA [None]
  - RENAL IMPAIRMENT [None]
  - SINUSITIS [None]
